FAERS Safety Report 18177732 (Version 1)
Quarter: 2020Q3

REPORT INFORMATION
  Report Type: Spontaneous
  Country: DE (occurrence: DE)
  Receive Date: 20200821
  Receipt Date: 20200821
  Transmission Date: 20201103
  Serious: Yes (Hospitalization)
  Sender: FDA-Public Use
  Company Number: DE-TEVA-2020-DE-1815660

PATIENT
  Age: 70 Year
  Sex: Male
  Weight: 76 kg

DRUGS (9)
  1. COLECALCIFEROL (VITAMIN D) [Concomitant]
     Dosage: 1000 IU (INTERNATIONAL UNIT) DAILY; 1?0?0?0
     Route: 048
  2. BISOPROLOL [Concomitant]
     Active Substance: BISOPROLOL
     Dosage: 5 MILLIGRAM DAILY;  1?0?0?0
     Route: 048
  3. PANKREATIN 20000 LAVES MIKRO [Concomitant]
     Dosage: 20000 IU (INTERNATIONAL UNIT) DAILY; 1?0?0?0
     Route: 048
  4. ESCITALOPRAM [Suspect]
     Active Substance: ESCITALOPRAM OXALATE
     Dosage: 5 MILLIGRAM DAILY; 1?0?0?0
     Route: 048
  5. LEVETIRACETAM. [Concomitant]
     Active Substance: LEVETIRACETAM
     Dosage: 500 MILLIGRAM DAILY;  1?0?0?0
     Route: 048
  6. LEVETIRACETAM. [Concomitant]
     Active Substance: LEVETIRACETAM
     Dosage: 750 MILLIGRAM DAILY;  0?0?1?0
     Route: 048
  7. ATORVASTATIN [Concomitant]
     Active Substance: ATORVASTATIN
     Dosage: 40 MILLIGRAM DAILY;  0?0?1?0
     Route: 048
  8. ACETYLSALICYLSAURE [Suspect]
     Active Substance: ASPIRIN
     Dosage: 100 MILLIGRAM DAILY; 1?0?0?0
     Route: 048
  9. METFORMIN [Concomitant]
     Active Substance: METFORMIN HYDROCHLORIDE
     Dosage: .5 DOSAGE FORMS DAILY; 1000 MG, 0.5?0?0?0
     Route: 048

REACTIONS (4)
  - General physical health deterioration [Unknown]
  - Depressed level of consciousness [Unknown]
  - Paresis [Unknown]
  - Aphasia [Unknown]
